FAERS Safety Report 20990790 (Version 2)
Quarter: 2022Q3

REPORT INFORMATION
  Report Type: Report from Study
  Country: BR (occurrence: BR)
  Receive Date: 20220622
  Receipt Date: 20220922
  Transmission Date: 20221026
  Serious: Yes (Other)
  Sender: FDA-Public Use
  Company Number: BR-CELLTRION INC.-2022BR007812

PATIENT

DRUGS (10)
  1. TRUXIMA [Suspect]
     Active Substance: RITUXIMAB-ABBS
     Indication: B-cell lymphoma stage III
     Dosage: 126 ML, RITUXIMAB ON D1 (ROUTE OF ADMINISTRATION: ENDOVENOUS)
     Route: 042
     Dates: start: 20220509
  2. VINCRISTINE [Concomitant]
     Active Substance: VINCRISTINE
     Indication: Lymphoma
     Dosage: 2 MG ON D1, (ROUTE OF ADMINISTRATION: ENDOVENOUS)
     Route: 042
     Dates: start: 20220509
  3. DOXORUBICIN [Concomitant]
     Active Substance: DOXORUBICIN
     Indication: Lymphoma
     Dosage: 79.5 MG ON D1, (ROUTE OF ADMINISTRATION: ENDOVENOUS)
     Route: 042
     Dates: start: 20220509
  4. CYCLOPHOSPHAMIDE [Concomitant]
     Active Substance: CYCLOPHOSPHAMIDE
     Indication: Lymphoma
     Dosage: 1192 MG ON D1, (ROUTE OF ADMINISTRATION: ENDOVENOUS)
     Route: 042
     Dates: start: 20220509
  5. ACETAMINOPHEN [Concomitant]
     Active Substance: ACETAMINOPHEN
     Indication: Premedication
     Dosage: 750 MG, (ROUTE OF ADMINISTRATION: ENDOVENOUS)
     Route: 042
     Dates: start: 20220509
  6. DIPHENHYDRAMINE [Concomitant]
     Active Substance: DIPHENHYDRAMINE
     Indication: Premedication
     Dosage: 50 MG, (ROUTE OF ADMINISTRATION: ENDOVENOUS)
     Route: 042
     Dates: start: 20220509
  7. GRANISETRON [Concomitant]
     Active Substance: GRANISETRON
     Indication: Premedication
     Dosage: 1 MG, (ROUTE OF ADMINISTRATION: ENDOVENOUS)
     Route: 042
     Dates: start: 20220509
  8. DEXAMETHASONE [Concomitant]
     Active Substance: DEXAMETHASONE
     Indication: Premedication
     Dosage: 10 MG, (ROUTE OF ADMINISTRATION: ENDOVENOUS)
     Route: 042
     Dates: start: 20220509
  9. PREDNISONE [Concomitant]
     Active Substance: PREDNISONE
     Indication: Lymphoma
     Dosage: FROM D1 TO D5, (ROUTE OF ADMINISTRATION: ENDOVENOUS)
     Route: 042
     Dates: start: 20220509
  10. SODIUM CHLORIDE [Concomitant]
     Active Substance: SODIUM CHLORIDE
     Indication: Premedication
     Dosage: 0.9% 250 ML, (SEPARATE 59.6 MILLILITERS FROM THE RECONSTITUTION AND DILUTE IN 500 MILLILITERS OF NAC
     Route: 042
     Dates: start: 20220509

REACTIONS (3)
  - Hypotension [Recovered/Resolved]
  - Pain [Recovered/Resolved]
  - Off label use [Unknown]

NARRATIVE: CASE EVENT DATE: 20220509
